FAERS Safety Report 10662548 (Version 1)
Quarter: 2014Q4

REPORT INFORMATION
  Report Type: Spontaneous
  Country: US (occurrence: None)
  Receive Date: 20141217
  Receipt Date: 20141217
  Transmission Date: 20150529
  Serious: Yes (Disabling, Other)
  Sender: FDA-Public Use
  Company Number: None

PATIENT
  Age: 31 Year
  Sex: Male
  Weight: 98.43 kg

DRUGS (1)
  1. CIPROFLOXACIN. [Suspect]
     Active Substance: CIPROFLOXACIN
     Indication: PROSTATE INFECTION
     Dosage: 3 PILLS
     Route: 048
     Dates: start: 20130928, end: 20131008

REACTIONS (13)
  - Tendonitis [None]
  - Tinnitus [None]
  - Abdominal pain upper [None]
  - Jaw disorder [None]
  - Gastritis [None]
  - Arthralgia [None]
  - Visual impairment [None]
  - Pain [None]
  - Pain in extremity [None]
  - Paraesthesia [None]
  - Depression [None]
  - Anxiety [None]
  - Skin burning sensation [None]

NARRATIVE: CASE EVENT DATE: 20131005
